FAERS Safety Report 5309956-6 (Version None)
Quarter: 2007Q2

REPORT INFORMATION
  Report Type: 
  Country: None (occurrence: None)
  Receive Date: 20070427
  Receipt Date: 20070419
  Transmission Date: 20071010
  Serious: Yes (Hospitalization)
  Sender: FDA-Public Use
  Company Number: 2007UW07751

PATIENT
  Age: 48 Year
  Sex: Male
  Weight: 100.9 kg

DRUGS (2)
  1. SEROQUEL [Suspect]
     Indication: ANXIETY
     Route: 048
     Dates: start: 20040301, end: 20040401
  2. SEROQUEL [Suspect]
     Indication: SLEEP DISORDER
     Route: 048
     Dates: start: 20040301, end: 20040401

REACTIONS (2)
  - DIABETES MELLITUS [None]
  - LOCALISED INFECTION [None]
